FAERS Safety Report 8905296 (Version 1)
Quarter: 2012Q4

REPORT INFORMATION
  Report Type: 
  Country: US (occurrence: US)
  Receive Date: 20121109
  Receipt Date: 20121109
  Transmission Date: 20130627
  Serious: Yes (Other)
  Sender: FDA-Public Use
  Company Number: PHHY2012US102942

PATIENT
  Age: 64 Year
  Sex: Female

DRUGS (17)
  1. TRIAMCINOLONE [Suspect]
     Indication: SPINAL OSTEOARTHRITIS
     Dosage: 40 mg, UNK
     Dates: start: 20110708
  2. TRIAMCINOLONE [Suspect]
     Dosage: 40 mg, UNK
     Dates: start: 20110708
  3. BUPIVACAINE [Concomitant]
     Dosage: 7 DF, UNK
     Dates: start: 20110708
  4. BUPIVACAINE [Concomitant]
     Dosage: 9 DF, UNK
     Dates: start: 20110708
  5. LOSARTAN [Concomitant]
  6. AMLODIPINE [Concomitant]
  7. HYDROCHLOROTHIAZIDE [Concomitant]
  8. SIMVASTATIN [Concomitant]
  9. SYNTHROID [Concomitant]
  10. LANSOPRAZOLE [Concomitant]
  11. TRAMADOL [Concomitant]
  12. ZOLPIDEM [Concomitant]
  13. TAPENTADOL [Concomitant]
  14. PREMARIN [Concomitant]
     Dosage: 0.625 mg, QD
  15. PROGESTERONE [Concomitant]
     Dosage: 100 mg, 3 times a month
  16. MIDAZOLAM [Concomitant]
     Indication: SEDATION
     Dosage: 4 mg, UNK
  17. FENTANYL [Concomitant]
     Indication: SEDATION
     Dosage: 100 ug, UNK

REACTIONS (7)
  - Vaginal haemorrhage [Recovered/Resolved]
  - Blood culture positive [Recovered/Resolved]
  - Endometrial hypertrophy [Recovered/Resolved]
  - Pyrexia [Recovered/Resolved]
  - Chills [Recovered/Resolved]
  - Nausea [Recovered/Resolved]
  - Diarrhoea [Recovered/Resolved]
